FAERS Safety Report 8245771-1 (Version None)
Quarter: 2012Q1

REPORT INFORMATION
  Report Type: 
  Country: None (occurrence: None)
  Receive Date: 20120330
  Receipt Date: 20120326
  Transmission Date: 20120608
  Serious: No
  Sender: FDA-Public Use
  Company Number: US-BIOGENIDEC-2012BI010727

PATIENT
  Age: 56 Year
  Sex: Female

DRUGS (2)
  1. TYSABRI [Suspect]
     Route: 042
     Dates: start: 20120222
  2. TYSABRI [Suspect]
     Indication: MULTIPLE SCLEROSIS
     Route: 042
     Dates: start: 20061117, end: 20110511

REACTIONS (10)
  - CRYING [None]
  - FALL [None]
  - CONTUSION [None]
  - MUSCULAR WEAKNESS [None]
  - LOSS OF CONTROL OF LEGS [None]
  - SUICIDAL IDEATION [None]
  - RESTLESS LEGS SYNDROME [None]
  - EXCORIATION [None]
  - PAIN IN EXTREMITY [None]
  - FATIGUE [None]
